FAERS Safety Report 9449078 (Version 2)
Quarter: 2013Q4

REPORT INFORMATION
  Report Type: Spontaneous
  Country: US (occurrence: None)
  Receive Date: 20130806
  Receipt Date: 20131101
  Transmission Date: 20140711
  Serious: Yes (Congenital Anomaly)
  Sender: FDA-Public Use
  Company Number: SYM-2013-07785

PATIENT
  Age: 0 Day
  Sex: Female

DRUGS (1)
  1. BUPROPION HYDROCHLORIDE [Suspect]
     Indication: PRODUCT USED FOR UNKNOWN INDICATION
     Route: 064
     Dates: start: 20080312, end: 20090811

REACTIONS (3)
  - Cleft palate [None]
  - Foetal exposure during pregnancy [None]
  - Maternal drugs affecting foetus [None]
